FAERS Safety Report 11971590 (Version 1)
Quarter: 2016Q1

REPORT INFORMATION
  Report Type: Spontaneous
  Country: US (occurrence: US)
  Receive Date: 20160128
  Receipt Date: 20160128
  Transmission Date: 20160526
  Serious: Yes (Death)
  Sender: FDA-Public Use
  Company Number: US-LPDUSPRD-20160053

PATIENT
  Age: 53 Year
  Sex: Female

DRUGS (4)
  1. PLATELETS [Concomitant]
     Active Substance: HUMAN PLATELET, ALLOGENIC
     Dosage: DOSE UNKNOWN
     Route: 065
  2. FRESH FROZEN PLASMA [Concomitant]
     Active Substance: HUMAN PLASMA
     Dosage: DOSE UNKNOWN
     Route: 065
  3. TRANEXAMIC ACID INJECTION(0517-0960-01) [Suspect]
     Active Substance: TRANEXAMIC ACID
     Dosage: DOSE UNKNOWN
     Route: 065
  4. CRYOPRECIPITATE [Concomitant]
     Active Substance: ANTIHEMOPHILIC FACTOR HUMAN\FIBRINOGEN HUMAN\FACTOR XIII CONCENTRATE (HUMAN)\VON WILLEBRAND FACTOR HUMAN
     Dosage: DOSE UNKNOWN
     Route: 065

REACTIONS (5)
  - Cardiac ventricular thrombosis [Fatal]
  - Pulseless electrical activity [Fatal]
  - Vena cava thrombosis [Fatal]
  - Atrial thrombosis [Fatal]
  - Pulmonary artery thrombosis [Fatal]
